FAERS Safety Report 5363963-6 (Version None)
Quarter: 2007Q2

REPORT INFORMATION
  Report Type: 
  Country: None (occurrence: None)
  Receive Date: 20070620
  Receipt Date: 20070614
  Transmission Date: 20071010
  Serious: Yes (Hospitalization)
  Sender: FDA-Public Use
  Company Number: HQWYE607714JUN07

PATIENT
  Age: 81 Year
  Sex: Female

DRUGS (7)
  1. PANTOZOL [Suspect]
     Indication: GASTROOESOPHAGEAL REFLUX DISEASE
     Dosage: BETWEEN 40 AND 80 MG DAILY
     Route: 048
     Dates: start: 20020101, end: 20060929
  2. PRIMPERAN INJ [Concomitant]
     Indication: GASTROOESOPHAGEAL REFLUX DISEASE
     Route: 048
     Dates: start: 20000101, end: 20020101
  3. PRIMPERAN INJ [Concomitant]
     Dosage: DF
     Route: 048
     Dates: start: 20020101, end: 20070322
  4. ATROVENT [Concomitant]
     Indication: ASTHMA
     Route: 055
  5. SINGULAIR [Concomitant]
     Indication: ASTHMA
     Route: 048
     Dates: start: 20000101, end: 20060922
  6. AGOPTON [Suspect]
     Indication: GASTROOESOPHAGEAL REFLUX DISEASE
     Dosage: DF
     Route: 048
     Dates: start: 20060929, end: 20070322
  7. SYMBICORT [Concomitant]
     Indication: ASTHMA
     Route: 055

REACTIONS (1)
  - COLITIS MICROSCOPIC [None]
